FAERS Safety Report 8054696-6 (Version None)
Quarter: 2012Q1

REPORT INFORMATION
  Report Type: 
  Country: None (occurrence: None)
  Receive Date: 20120119
  Receipt Date: 20120113
  Transmission Date: 20120608
  Serious: No
  Sender: FDA-Public Use
  Company Number: US-PFIZER INC-2012010912

PATIENT
  Sex: Male

DRUGS (2)
  1. ALPHAGAN [Suspect]
     Indication: GLAUCOMA
     Dosage: DAILY
     Route: 047
  2. XALATAN [Suspect]
     Indication: GLAUCOMA
     Dosage: DAILY
     Route: 047
     Dates: start: 20110101

REACTIONS (1)
  - OCULAR HYPERAEMIA [None]
